FAERS Safety Report 4312327-2 (Version None)
Quarter: 2004Q1

REPORT INFORMATION
  Report Type: 
  Country: None (occurrence: None)
  Receive Date: 20040305
  Receipt Date: 20040302
  Transmission Date: 20041129
  Serious: Yes (Hospitalization)
  Sender: FDA-Public Use
  Company Number: FR-GLAXOSMITHKLINE-B0325323A

PATIENT
  Age: 57 Year
  Sex: Male
  Weight: 75 kg

DRUGS (4)
  1. FORTUM [Suspect]
     Indication: PYREXIA
     Dosage: 2G THREE TIMES PER DAY
     Route: 042
     Dates: start: 20031019, end: 20031023
  2. CIFLOX [Suspect]
     Indication: PYREXIA
     Dosage: 400MG TWICE PER DAY
     Route: 042
     Dates: start: 20031019, end: 20031023
  3. CISPLATIN [Suspect]
     Indication: PLEURAL MESOTHELIOMA
     Route: 042
     Dates: start: 20030825, end: 20031013
  4. PEMETREXED DISODIUM [Suspect]
     Indication: PLEURAL MESOTHELIOMA
     Route: 042
     Dates: start: 20030825, end: 20031013

REACTIONS (3)
  - BONE MARROW DEPRESSION [None]
  - NEUTROPHIL COUNT DECREASED [None]
  - PYREXIA [None]
